FAERS Safety Report 8068581-7 (Version None)
Quarter: 2012Q1

REPORT INFORMATION
  Report Type: 
  Country: None (occurrence: None)
  Receive Date: 20120124
  Receipt Date: 20111114
  Transmission Date: 20120608
  Serious: No
  Sender: FDA-Public Use
  Company Number: US-AMGEN-USASP2011059747

PATIENT
  Age: 80 Year
  Sex: Female

DRUGS (13)
  1. ASPIRIN [Concomitant]
     Dosage: UNK
  2. OS-CAL ULTRA                       /00751501/ [Concomitant]
     Dosage: UNK
  3. PROLIA [Suspect]
     Indication: OSTEOPOROSIS POSTMENOPAUSAL
     Dosage: 60 MG, Q6MO
     Route: 058
     Dates: start: 20110901
  4. ZYRTEC [Concomitant]
     Dosage: UNK
  5. POTASSIUM CHLORIDE [Concomitant]
     Dosage: UNK
  6. PREVACID [Concomitant]
     Dosage: UNK
  7. MULTIVITAMINS WITH MINERALS        /02319901/ [Concomitant]
     Dosage: 1 UNK, UNK
  8. SPIRONOLACTONE [Concomitant]
     Dosage: 1 UNK, UNK
  9. METFORMIN HCL [Concomitant]
     Dosage: UNK
  10. AZOR                               /06230801/ [Concomitant]
     Dosage: 1 UNK, UNK
  11. PRAVASTATIN [Concomitant]
     Dosage: UNK
  12. BYSTOLIC [Concomitant]
     Dosage: UNK
  13. DICYCLOMINE [Concomitant]
     Dosage: UNK

REACTIONS (3)
  - MYALGIA [None]
  - GINGIVAL DISORDER [None]
  - PAIN IN EXTREMITY [None]
